FAERS Safety Report 9667886 (Version 1)
Quarter: 2013Q4

REPORT INFORMATION
  Report Type: Spontaneous
  Country: BR (occurrence: BR)
  Receive Date: 20131104
  Receipt Date: 20131104
  Transmission Date: 20140711
  Serious: Yes (Other)
  Sender: FDA-Public Use
  Company Number: BR-PFIZER INC-2013312216

PATIENT
  Sex: Female

DRUGS (1)
  1. NORDETTE [Suspect]
     Indication: CONTRACEPTION
     Dosage: UNK
     Route: 048
     Dates: start: 2011

REACTIONS (3)
  - Gestational hypertension [Not Recovered/Not Resolved]
  - Drug ineffective [Unknown]
  - Unintended pregnancy [Unknown]
